FAERS Safety Report 6983122-0 (Version None)
Quarter: 2010Q3

REPORT INFORMATION
  Report Type: 
  Country: None (occurrence: None)
  Receive Date: 20100914
  Receipt Date: 20100609
  Transmission Date: 20110219
  Serious: Yes (Other)
  Sender: FDA-Public Use
  Company Number: US-PFIZER INC-2010073527

PATIENT
  Age: 48 Year
  Sex: Female

DRUGS (2)
  1. LYRICA [Suspect]
     Indication: PARAESTHESIA
  2. NEURONTIN [Suspect]

REACTIONS (4)
  - ABDOMINAL DISCOMFORT [None]
  - CONFUSIONAL STATE [None]
  - FEELING ABNORMAL [None]
  - SOMNOLENCE [None]
